FAERS Safety Report 8382696-5 (Version None)
Quarter: 2012Q2

REPORT INFORMATION
  Report Type: 
  Country: None (occurrence: None)
  Receive Date: 20120524
  Receipt Date: 20120221
  Transmission Date: 20120825
  Serious: No
  Sender: FDA-Public Use
  Company Number: US-ALLERGAN-1202412US

PATIENT
  Sex: Female

DRUGS (2)
  1. LASTACAFT [Suspect]
     Indication: HYPERSENSITIVITY
     Dosage: 1 GTT, USED ONCE
     Route: 047
     Dates: start: 20120201, end: 20120201
  2. LASTACAFT [Suspect]
     Route: 047

REACTIONS (1)
  - OCULAR HYPERAEMIA [None]
